FAERS Safety Report 8211076-8 (Version None)
Quarter: 2012Q1

REPORT INFORMATION
  Report Type: 
  Country: None (occurrence: None)
  Receive Date: 20120315
  Receipt Date: 20120312
  Transmission Date: 20120608
  Serious: Yes (Death, Hospitalization, Other)
  Sender: FDA-Public Use
  Company Number: PHHY2011US50015

PATIENT
  Sex: Male
  Weight: 117.1 kg

DRUGS (21)
  1. EXJADE [Suspect]
     Indication: MAGNESIUM METABOLISM DISORDER
  2. SIMVASTATIN [Concomitant]
     Dosage: 80 MG, UNK
  3. EXJADE [Suspect]
     Indication: LYMPHOPROLIFERATIVE DISORDER
  4. DILTIAZEM HCL [Concomitant]
     Dosage: 240 MG, DAILY
  5. LANTUS [Concomitant]
     Dosage: 66 U, BID
  6. FINASTERIDE [Concomitant]
     Dosage: UNK UKN, UNK
  7. CATAPRES-TTS-1 [Concomitant]
  8. VIDAZA [Concomitant]
     Indication: MYELODYSPLASTIC SYNDROME
  9. POTASSIUM CHLORIDE [Concomitant]
     Dosage: UNK UKN, UNK
  10. ALPRAZOLAM [Concomitant]
     Dosage: 1 MG, UNK
  11. AMLODIPINE [Concomitant]
     Dosage: 10 MG, DAILY
  12. MIRALAX [Concomitant]
     Dosage: 17 G, UNK
     Route: 048
  13. TERAZOSIN HCL [Concomitant]
     Dosage: UNK UKN, UNK
  14. BUMETANIDE [Concomitant]
     Dosage: 2 MG, BID
  15. LISINOPRIL [Concomitant]
     Dosage: 40 MG, BID
  16. CLOBETASOL PROPIONATE [Concomitant]
     Dosage: UNK UKN, UNK
  17. GEMFIBROZIL [Concomitant]
     Dosage: 600 MG, BID
  18. HELIOX [Concomitant]
     Dosage: UNK UKN, UNK
  19. EXJADE [Suspect]
     Indication: HAEMOCHROMATOSIS
     Dosage: 2250 MG, DAILY
     Route: 048
     Dates: start: 20110411
  20. PREDNISOLONE [Concomitant]
     Dosage: 20 MG, DAILY
     Route: 048
  21. CARVEDILOL [Concomitant]
     Dosage: 25 MG, BID
     Route: 048

REACTIONS (20)
  - PULMONARY CONGESTION [None]
  - HYPOGLYCAEMIA [None]
  - RENAL FAILURE ACUTE [None]
  - ANAEMIA [None]
  - CARDIOMEGALY [None]
  - NEOPLASM PROGRESSION [None]
  - MYELODYSPLASTIC SYNDROME TRANSFORMATION [None]
  - ACUTE RESPIRATORY FAILURE [None]
  - DYSPNOEA [None]
  - PNEUMONIA [None]
  - HYPOXIA [None]
  - FLUID OVERLOAD [None]
  - FATIGUE [None]
  - LEUKOPENIA [None]
  - PYREXIA [None]
  - ASTHENIA [None]
  - NEOPLASM MALIGNANT [None]
  - INTERSTITIAL LUNG DISEASE [None]
  - CONDITION AGGRAVATED [None]
  - THROMBOCYTOPENIA [None]
